FAERS Safety Report 5747794-0 (Version None)
Quarter: 2008Q2

REPORT INFORMATION
  Report Type: 
  Country: None (occurrence: None)
  Receive Date: 20080523
  Receipt Date: 20080519
  Transmission Date: 20081010
  Serious: Yes (Other)
  Sender: FDA-Public Use
  Company Number: A0728558A

PATIENT
  Age: 53 Year
  Sex: Male

DRUGS (4)
  1. LAMICTAL [Suspect]
     Indication: BIPOLAR DISORDER
     Dosage: 200MG PER DAY
     Route: 048
  2. GABAPENTIN [Concomitant]
  3. KLONOPIN [Concomitant]
  4. PROPRANOLOL [Concomitant]

REACTIONS (1)
  - IMPAIRED HEALING [None]
